FAERS Safety Report 5883706-7 (Version None)
Quarter: 2008Q3

REPORT INFORMATION
  Report Type: 
  Country: None (occurrence: None)
  Receive Date: 20080912
  Receipt Date: 20080912
  Transmission Date: 20090109
  Serious: Yes (Other)
  Sender: FDA-Public Use
  Company Number: None

PATIENT
  Age: 32 Year
  Sex: Male
  Weight: 61.2356 kg

DRUGS (1)
  1. GABAPENTIN [Suspect]
     Indication: HEADACHE
     Dosage: 200 MG DAILY AT BEDTIME PO
     Route: 048
     Dates: start: 20080826, end: 20080911

REACTIONS (1)
  - PROSTATIC SPECIFIC ANTIGEN INCREASED [None]
